FAERS Safety Report 5411829-5 (Version None)
Quarter: 2007Q3

REPORT INFORMATION
  Report Type: 
  Country: None (occurrence: None)
  Receive Date: 20070813
  Receipt Date: 20070806
  Transmission Date: 20080115
  Serious: Yes (Other)
  Sender: FDA-Public Use
  Company Number: FR-JNJFOC-20070600778

PATIENT
  Age: 54 Year
  Sex: Female
  Weight: 79 kg

DRUGS (10)
  1. REMICADE [Suspect]
     Route: 042
  2. REMICADE [Suspect]
     Route: 042
  3. REMICADE [Suspect]
     Route: 042
  4. REMICADE [Suspect]
     Route: 042
  5. REMICADE [Suspect]
     Indication: ANKYLOSING SPONDYLITIS
     Route: 042
  6. SKENAN [Concomitant]
     Indication: ANKYLOSING SPONDYLITIS
  7. CORTANCYL [Concomitant]
     Indication: ANKYLOSING SPONDYLITIS
  8. DOLIPRANE [Concomitant]
     Indication: ANKYLOSING SPONDYLITIS
  9. ZELITREX [Concomitant]
     Indication: HERPES SIMPLEX
  10. BISOPROLOL [Concomitant]
     Indication: HYPERTENSION

REACTIONS (3)
  - DIPLOPIA [None]
  - INFUSION RELATED REACTION [None]
  - VISION BLURRED [None]
